FAERS Safety Report 20658364 (Version 1)
Quarter: 2022Q1

REPORT INFORMATION
  Report Type: Spontaneous
  Country: US (occurrence: None)
  Receive Date: 20220330
  Receipt Date: 20220330
  Transmission Date: 20220424
  Serious: Yes (Hospitalization)
  Sender: FDA-Public Use
  Company Number: None

PATIENT
  Age: 65 Year
  Sex: Female

DRUGS (18)
  1. AMBRISENTAN [Suspect]
     Active Substance: AMBRISENTAN
     Indication: Pulmonary hypertension
     Dosage: FREQUENCY : DAILY;?
     Route: 048
     Dates: start: 20180822
  2. SILDENAFIL [Concomitant]
     Active Substance: SILDENAFIL
  3. TREPROSTINIL [Concomitant]
     Active Substance: TREPROSTINIL
  4. ALBUTEROL SULFATE [Concomitant]
     Active Substance: ALBUTEROL SULFATE
  5. ASTELIN [Concomitant]
     Active Substance: AZELASTINE HYDROCHLORIDE
  6. CELLCEPT [Concomitant]
     Active Substance: MYCOPHENOLATE MOFETIL
  7. Acyclovir oint [Concomitant]
  8. METOLAZONE [Concomitant]
     Active Substance: METOLAZONE
  9. CLOTRIMAZOLE TROCHE [Concomitant]
     Active Substance: CLOTRIMAZOLE
  10. FUROSEMIDE [Concomitant]
     Active Substance: FUROSEMIDE
  11. MEPRON [Concomitant]
     Active Substance: ATOVAQUONE
  12. PEPCID [Concomitant]
     Active Substance: FAMOTIDINE
  13. K-TAB [Concomitant]
     Active Substance: POTASSIUM CHLORIDE
  14. PREDNISONE [Concomitant]
     Active Substance: PREDNISONE
  15. Prevident dental paste [Concomitant]
  16. ALLOPURINOL [Concomitant]
     Active Substance: ALLOPURINOL
  17. Refresh optive advanced opht dropperette [Concomitant]
  18. MAGNESIUM OXIDE [Concomitant]
     Active Substance: MAGNESIUM OXIDE

REACTIONS (5)
  - Oedema [None]
  - Acute kidney injury [None]
  - Polyuria [None]
  - Acute respiratory failure [None]
  - Dyspnoea [None]

NARRATIVE: CASE EVENT DATE: 20220328
